FAERS Safety Report 13580885 (Version 5)
Quarter: 2017Q2

REPORT INFORMATION
  Report Type: Spontaneous
  Country: JP (occurrence: JP)
  Receive Date: 20170525
  Receipt Date: 20170615
  Transmission Date: 20170830
  Serious: Yes (Other)
  Sender: FDA-Public Use
  Company Number: JP-UCBSA-2017019584

PATIENT
  Age: 70 Year
  Sex: Male

DRUGS (3)
  1. NEUPRO [Suspect]
     Active Substance: ROTIGOTINE
     Indication: PARKINSON^S DISEASE
     Dosage: 8 MG, ONCE DAILY (QD)
     Route: 062
  2. NEUPRO [Suspect]
     Active Substance: ROTIGOTINE
     Dosage: 2 MG, ONCE DAILY (QD)
     Route: 062
  3. NEUPRO [Suspect]
     Active Substance: ROTIGOTINE
     Dosage: 4 MG, ONCE DAILY (QD)
     Route: 062

REACTIONS (1)
  - Toxic skin eruption [Recovered/Resolved]
